FAERS Safety Report 9031126 (Version 1)
Quarter: 2013Q1

REPORT INFORMATION
  Report Type: Other
  Country: GB (occurrence: GB)
  Receive Date: 20130123
  Receipt Date: 20130123
  Transmission Date: 20140127
  Serious: Yes (Hospitalization)
  Sender: FDA-Public Use
  Company Number: GB-WATSON-2013-00952

PATIENT
  Age: 73 Year
  Sex: Male

DRUGS (10)
  1. METRONIDAZOLE (UNKNOWN) [Suspect]
     Indication: PRODUCT USED FOR UNKNOWN INDICATION
     Dosage: 400 MG, TID  2 DOSES RECEIVED
     Route: 048
     Dates: start: 20110305, end: 20110306
  2. AMOXICILLIN-CLAVULANATE [Suspect]
     Indication: STREPTOCOCCAL SEPSIS
     Dosage: 625 MG, TID
     Route: 048
     Dates: start: 20110306, end: 20110313
  3. AMOXICILLIN-CLAVULANATE [Suspect]
     Indication: PRODUCT USED FOR UNKNOWN INDICATION
     Dosage: 625 MG, TID  5 DOSES RECEIVED
     Route: 048
     Dates: start: 20110317, end: 20110319
  4. AMOXICILLIN-CLAVULANATE [Suspect]
     Dosage: 1.2 G, TID  BASED ON SACRAL SWAB
     Route: 042
     Dates: start: 20110329, end: 20110402
  5. AMOXICILLIN-CLAVULANATE [Suspect]
     Dosage: 625 MG, TID
     Route: 048
     Dates: start: 20110402, end: 20110405
  6. AMOXICILLIN-CLAVULANATE [Suspect]
     Dosage: 1.2 G, TID  1 DOSE RECEIVED
     Route: 042
     Dates: start: 20110406, end: 20110406
  7. FLUCLOXACILLIN [Suspect]
     Indication: ULCER
     Dosage: 500 MG, QID  EMPIRICAL TX - AWAITING C+S
     Route: 048
     Dates: start: 20110302, end: 20110306
  8. TEICOPLANIN [Suspect]
     Indication: PRODUCT USED FOR UNKNOWN INDICATION
     Dosage: 800MG STAT
     Route: 042
     Dates: start: 20110305, end: 20110305
  9. PIPERACILLIN AND TAZOBACTAM [Suspect]
     Indication: PRODUCT USED FOR UNKNOWN INDICATION
     Dosage: 4.5 G, TID  5 DOSES RECEIVED
     Route: 042
     Dates: start: 20110316, end: 20110317
  10. SULPIRIDE [Concomitant]
     Indication: PRODUCT USED FOR UNKNOWN INDICATION
     Dosage: 400 MG, BID
     Route: 048

REACTIONS (4)
  - Clostridium difficile infection [Recovered/Resolved]
  - Norovirus test positive [Unknown]
  - Diarrhoea [Unknown]
  - Vomiting [Unknown]
